FAERS Safety Report 10441723 (Version 1)
Quarter: 2014Q3

REPORT INFORMATION
  Report Type: Spontaneous
  Country: US (occurrence: US)
  Receive Date: 20140908
  Receipt Date: 20140908
  Transmission Date: 20150326
  Serious: No
  Sender: FDA-Public Use
  Company Number: US-BAYER-2014-128078

PATIENT
  Age: 20 Year
  Sex: Male

DRUGS (2)
  1. ALEVE [Suspect]
     Active Substance: NAPROXEN SODIUM
     Indication: LYMPHADENOPATHY
     Dosage: 880 MG, QD
     Route: 048
     Dates: start: 20131016, end: 20131016
  2. CORTISONE [Concomitant]
     Active Substance: CORTISONE\HYDROCORTISONE
     Indication: RASH
     Dosage: 1 APP, PRN
     Route: 061
     Dates: start: 20131003, end: 20131201

REACTIONS (3)
  - Extra dose administered [None]
  - Exposure via father [None]
  - Off label use [None]

NARRATIVE: CASE EVENT DATE: 20131016
